FAERS Safety Report 7400435-9 (Version None)
Quarter: 2011Q2

REPORT INFORMATION
  Report Type: 
  Country: None (occurrence: None)
  Receive Date: 20110405
  Receipt Date: 20110405
  Transmission Date: 20111010
  Serious: Yes (Life-Threatening)
  Sender: FDA-Public Use
  Company Number: None

PATIENT
  Age: 28 Year
  Sex: Female
  Weight: 90.7194 kg

DRUGS (1)
  1. LEVAQUIN [Suspect]
     Indication: ACUTE SINUSITIS
     Dosage: 500MG ONCE DAILY PO
     Route: 048
     Dates: start: 20110330, end: 20110401

REACTIONS (9)
  - LOSS OF CONSCIOUSNESS [None]
  - CONFUSIONAL STATE [None]
  - MEMORY IMPAIRMENT [None]
  - DROOLING [None]
  - RASH ERYTHEMATOUS [None]
  - HYPOPHAGIA [None]
  - CONVULSION [None]
  - URINARY INCONTINENCE [None]
  - FEELING ABNORMAL [None]
